FAERS Safety Report 11972340 (Version 5)
Quarter: 2016Q1

REPORT INFORMATION
  Report Type: Report from Study
  Country: US (occurrence: US)
  Receive Date: 20160128
  Receipt Date: 20160328
  Transmission Date: 20160526
  Serious: Yes (Other)
  Sender: FDA-Public Use
  Company Number: US-GILEAD-2016-0192569

PATIENT
  Age: 65 Year
  Sex: Male

DRUGS (12)
  1. LEDIPASVIR/SOFOSBUVIR [Suspect]
     Active Substance: LEDIPASVIR\SOFOSBUVIR
     Indication: CHRONIC HEPATITIS C
     Dosage: 1 DF, QD
     Route: 048
     Dates: start: 201511
  2. TRIBENZOR [Concomitant]
     Active Substance: AMLODIPINE BESYLATE\HYDROCHLOROTHIAZIDE\OLMESARTAN MEDOXOMIL
     Dosage: 1 DF, BID
     Dates: start: 20150827
  3. DOLOPHINE [Concomitant]
     Active Substance: METHADONE HYDROCHLORIDE
     Dosage: 20 MG, QD
  4. KLOR-CON [Concomitant]
     Active Substance: POTASSIUM CHLORIDE
     Dosage: UNK
     Dates: start: 20151130
  5. NEORAL [Concomitant]
     Active Substance: CYCLOSPORINE
     Dosage: 25 MG, BID
     Dates: start: 20150827
  6. VALIUM [Concomitant]
     Active Substance: DIAZEPAM
     Dosage: 5 MG, UNK
     Dates: start: 20150904
  7. LIORESAL [Concomitant]
     Active Substance: BACLOFEN
     Dosage: 10 MG, TID
     Dates: start: 20150326
  8. BUTRANS [Concomitant]
     Active Substance: BUPRENORPHINE
     Dosage: UNK
     Dates: start: 20150326
  9. VITAMINS WITH MINERALS [Concomitant]
     Active Substance: MINERALS\VITAMINS
     Dosage: 1 DF, UNK
     Route: 048
  10. CELLCEPT [Concomitant]
     Active Substance: MYCOPHENOLATE MOFETIL\MYCOPHENOLATE MOFETIL HYDROCHLORIDE
     Dosage: 500 MG, UNK
     Dates: start: 20151115
  11. LASIX [Concomitant]
     Active Substance: FUROSEMIDE
     Dosage: 40 MG, UNK
     Dates: start: 20150804
  12. KEPPRA [Concomitant]
     Active Substance: LEVETIRACETAM
     Dosage: 500 MG, BID
     Dates: start: 20150711

REACTIONS (13)
  - Abdominal pain upper [Unknown]
  - Post procedural complication [Unknown]
  - Fatigue [Not Recovered/Not Resolved]
  - Tension headache [Not Recovered/Not Resolved]
  - Abdominal pain [Unknown]
  - Urinary tract infection [Unknown]
  - Pain [Unknown]
  - Dehydration [Unknown]
  - Helicobacter infection [Unknown]
  - Hernia [Unknown]
  - Amnesia [Not Recovered/Not Resolved]
  - Asthenia [Not Recovered/Not Resolved]
  - Nausea [Unknown]

NARRATIVE: CASE EVENT DATE: 20151221
